FAERS Safety Report 19416476 (Version 3)
Quarter: 2021Q3

REPORT INFORMATION
  Report Type: Spontaneous
  Country: DE (occurrence: DE)
  Receive Date: 20210614
  Receipt Date: 20210707
  Transmission Date: 20211014
  Serious: Yes (Other)
  Sender: FDA-Public Use
  Company Number: DE-PFIZER INC-2021420404

PATIENT
  Age: 55 Year
  Sex: Female
  Weight: 79 kg

DRUGS (14)
  1. KANJINTI [Suspect]
     Active Substance: TRASTUZUMAB-ANNS
     Dosage: UNK
  2. TORASEMIDE [Concomitant]
     Active Substance: TORSEMIDE
     Dosage: 10 MG, 1X/DAY
  3. DOCETAXEL. [Suspect]
     Active Substance: DOCETAXEL
     Indication: BREAST CANCER METASTATIC
     Dosage: UNK
     Dates: start: 20210325, end: 20210325
  4. DEXAMETHASONE. [Concomitant]
     Active Substance: DEXAMETHASONE
     Dosage: 8 MG, BEFORE INFUSION OF TRASTUZUMAB, PERJETA FOR 15 MINUTES
  5. HISTAKUT [Concomitant]
     Active Substance: DIMETHINDENE MALEATE
     Dosage: BEFORE INFUSION OF TRASTUZUMAB
     Route: 042
  6. PANTOPRAZOLE [PANTOPRAZOLE SODIUM SESQUIHYDRATE] [Concomitant]
     Active Substance: PANTOPRAZOLE SODIUM
     Dosage: 0.5 DF, DAILY
  7. DEXAMETHASONE. [Concomitant]
     Active Substance: DEXAMETHASONE
     Dosage: 3 MG, BEFORE INFUSION OF TRASTUZUMAB, PERJETA FOR 15 MINUTES
  8. TRASTUZUMAB. [Suspect]
     Active Substance: TRASTUZUMAB
     Dosage: 640 MG,ON THE SECOND DAY OF THE FIRST CYCLE
     Route: 042
     Dates: start: 20210325, end: 2021
  9. PERTUZUMAB. [Suspect]
     Active Substance: PERTUZUMAB
     Indication: BREAST CANCER METASTATIC
     Dosage: 840 MG ON THE FIRST DAY OF THE FIRST CYCLE
     Route: 042
     Dates: start: 20210325, end: 20210325
  10. GRANISETRON [Concomitant]
     Active Substance: GRANISETRON
     Indication: PREMEDICATION
     Dosage: AMPULE
     Route: 042
  11. LAXOFALK [Concomitant]
     Dosage: 40 MG
  12. FEBUXOSTAT. [Concomitant]
     Active Substance: FEBUXOSTAT
     Dosage: 80 MG, 1X/DAY
  13. DOCETAXEL. [Suspect]
     Active Substance: DOCETAXEL
     Dosage: UNK
     Dates: start: 20210326, end: 20210326
  14. DOCETAXEL. [Suspect]
     Active Substance: DOCETAXEL
     Dosage: UNK
     Dates: start: 20210330

REACTIONS (8)
  - Dyspnoea [Unknown]
  - Asthenia [Unknown]
  - Circulatory collapse [Unknown]
  - Acute kidney injury [Recovered/Resolved]
  - Haemolytic anaemia [Recovered/Resolved]
  - Acute hepatic failure [Recovered/Resolved]
  - Folate deficiency [Unknown]
  - Infusion related reaction [Recovering/Resolving]

NARRATIVE: CASE EVENT DATE: 20200325
